FAERS Safety Report 8535482-7 (Version None)
Quarter: 2012Q3

REPORT INFORMATION
  Report Type: 
  Country: None (occurrence: None)
  Receive Date: 20120725
  Receipt Date: 20120718
  Transmission Date: 20120928
  Serious: Yes (Hospitalization, Other)
  Sender: FDA-Public Use
  Company Number: US-AMGEN-USASP2012003374

PATIENT
  Age: 61 Year
  Sex: Female

DRUGS (1)
  1. ENBREL [Suspect]
     Indication: RHEUMATOID ARTHRITIS
     Dosage: 25 MG, QWK
     Route: 058
     Dates: start: 20000101

REACTIONS (33)
  - MUSCULAR WEAKNESS [None]
  - OSTEOARTHRITIS [None]
  - INJECTION SITE PAIN [None]
  - UMBILICAL HERNIA [None]
  - GALLBLADDER DISORDER [None]
  - PALPITATIONS [None]
  - HYPERSENSITIVITY [None]
  - FINGER DEFORMITY [None]
  - DIVERTICULUM [None]
  - INJECTION SITE HAEMATOMA [None]
  - MYOCARDIAL INFARCTION [None]
  - WEIGHT DECREASED [None]
  - DEHYDRATION [None]
  - SKIN INDURATION [None]
  - HAND DEFORMITY [None]
  - INJECTION SITE PRURITUS [None]
  - RHEUMATOID LUNG [None]
  - INJECTION SITE MASS [None]
  - DIARRHOEA [None]
  - PNEUMONIA [None]
  - APHAGIA [None]
  - ABDOMINAL HERNIA [None]
  - INJECTION SITE INDURATION [None]
  - ASTHMA [None]
  - GASTRITIS [None]
  - INJECTION SITE HAEMORRHAGE [None]
  - PULMONARY FIBROSIS [None]
  - OXYGEN SATURATION DECREASED [None]
  - PAIN IN EXTREMITY [None]
  - NAUSEA [None]
  - INJECTION SITE SWELLING [None]
  - DIVERTICULITIS [None]
  - DRUG HYPERSENSITIVITY [None]
